FAERS Safety Report 20737075 (Version 2)
Quarter: 2022Q2

REPORT INFORMATION
  Report Type: Spontaneous
  Country: US (occurrence: US)
  Receive Date: 20220421
  Receipt Date: 20220425
  Transmission Date: 20220721
  Serious: Yes (Life-Threatening, Hospitalization, Other)
  Sender: FDA-Public Use
  Company Number: US-INCYTE CORPORATION-2022IN003598

PATIENT

DRUGS (1)
  1. JAKAFI [Suspect]
     Active Substance: RUXOLITINIB
     Indication: Chronic graft versus host disease
     Dosage: 10 MILLIGRAM, BID
     Route: 048
     Dates: start: 202204

REACTIONS (11)
  - Staphylococcal bacteraemia [Recovering/Resolving]
  - Viral sepsis [Unknown]
  - Cystitis haemorrhagic [Unknown]
  - Septic shock [Unknown]
  - Transplantation complication [Unknown]
  - Renal disorder [Unknown]
  - Feeling abnormal [Unknown]
  - Escherichia infection [Unknown]
  - Adenoviral upper respiratory infection [Unknown]
  - Blood creatinine increased [Not Recovered/Not Resolved]
  - Urinary tract infection [Not Recovered/Not Resolved]
